FAERS Safety Report 5728279-4 (Version None)
Quarter: 2008Q2

REPORT INFORMATION
  Report Type: 
  Country: None (occurrence: None)
  Receive Date: 20080502
  Receipt Date: 20080502
  Transmission Date: 20081010
  Serious: Yes (Hospitalization)
  Sender: FDA-Public Use
  Company Number: None

PATIENT
  Sex: Male
  Weight: 58.96 kg

DRUGS (2)
  1. PROGRAF [Suspect]
     Dosage: 3MG BID PO
     Route: 048
     Dates: start: 20080404
  2. CELLCEPT [Suspect]
     Dosage: 1G BID PO
     Route: 048
     Dates: start: 20080404

REACTIONS (2)
  - HYPERGLYCAEMIA [None]
  - WHEEZING [None]
